FAERS Safety Report 7891236 (Version 2)
Quarter: 2013Q3

REPORT INFORMATION
  Report Type: Spontaneous
  Country: US (occurrence: US)
  Receive Date: 20110408
  Receipt Date: 20130917
  Transmission Date: 20140515
  Serious: Yes (Death, Hospitalization, Other)
  Sender: FDA-Public Use
  Company Number: US-MPIJNJ-2011-01275

PATIENT
  Age: 73 Year
  Sex: Female

DRUGS (1)
  1. VELCADE [Suspect]
     Indication: PLASMA CELL MYELOMA
     Dosage: UNK, 1/WEEK
     Route: 042
     Dates: start: 20100211, end: 20110310

REACTIONS (5)
  - Plasma cell myeloma [Fatal]
  - Rib fracture [Unknown]
  - Spinal fracture [Unknown]
  - Musculoskeletal pain [Unknown]
  - Musculoskeletal chest pain [Unknown]
